FAERS Safety Report 7709936-7 (Version None)
Quarter: 2011Q3

REPORT INFORMATION
  Report Type: 
  Country: None (occurrence: None)
  Receive Date: 20110825
  Receipt Date: 20110818
  Transmission Date: 20111222
  Serious: Yes (Other)
  Sender: FDA-Public Use
  Company Number: FR-CEPHALON-2011002227

PATIENT
  Sex: Female
  Weight: 58 kg

DRUGS (13)
  1. DOMPERIDONE [Concomitant]
  2. LEXOMIL [Concomitant]
  3. CELLUVISC [Concomitant]
  4. MODAFANIL [Suspect]
     Indication: NARCOLEPSY
     Route: 048
     Dates: start: 19980101
  5. MORPHINE SULFATE [Concomitant]
  6. VOLTAREN [Concomitant]
  7. FORLAX [Concomitant]
  8. PRAZEPAM [Concomitant]
  9. HEXTRIL [Concomitant]
  10. ACETAMINOPHEN [Concomitant]
  11. AMITRIPTYLINE HCL [Concomitant]
  12. MODAFANIL [Suspect]
     Route: 048
  13. LEVOTHYROXINE SODIUM [Concomitant]

REACTIONS (2)
  - PULMONARY TUBERCULOSIS [None]
  - PANCYTOPENIA [None]
